FAERS Safety Report 8133770-X (Version None)
Quarter: 2012Q1

REPORT INFORMATION
  Report Type: 
  Country: None (occurrence: None)
  Receive Date: 20120213
  Receipt Date: 20120213
  Transmission Date: 20120608
  Serious: Yes (Other)
  Sender: FDA-Public Use
  Company Number: None

PATIENT
  Age: 43 Year
  Sex: Female
  Weight: 90.718 kg

DRUGS (3)
  1. BUSPAR [Concomitant]
  2. TRAZODONE HCL [Concomitant]
  3. LATUDA [Suspect]
     Indication: SCHIZOPHRENIA, PARANOID TYPE
     Dates: start: 20120209, end: 20120209

REACTIONS (3)
  - DYSPNOEA [None]
  - CHOKING SENSATION [None]
  - FEELING ABNORMAL [None]
